FAERS Safety Report 4548399-X (Version None)
Quarter: 2005Q1

REPORT INFORMATION
  Report Type: 
  Country: None (occurrence: None)
  Receive Date: 20050110
  Receipt Date: 20050103
  Transmission Date: 20050727
  Serious: Yes (Hospitalization)
  Sender: FDA-Public Use
  Company Number: US-JNJFOC-20050100651

PATIENT
  Age: 60 Year
  Sex: Female

DRUGS (3)
  1. RISPERDAL [Suspect]
     Indication: BIPOLAR DISORDER
     Route: 049
  2. DEPAKOTE [Concomitant]
     Route: 049
  3. SEROQUEL [Concomitant]
     Route: 049

REACTIONS (2)
  - DIABETES INSIPIDUS [None]
  - HOSPITALISATION [None]
